FAERS Safety Report 6219219-2 (Version None)
Quarter: 2009Q2

REPORT INFORMATION
  Report Type: 
  Country: None (occurrence: None)
  Receive Date: 20090605
  Receipt Date: 20090605
  Transmission Date: 20091009
  Serious: Yes (Hospitalization)
  Sender: FDA-Public Use
  Company Number: None

PATIENT
  Age: 11 Year
  Sex: Male
  Weight: 34.0198 kg

DRUGS (1)
  1. ADVAIR DISKUS 250/50 [Suspect]
     Indication: ASTHMA
     Dosage: 250/50 1 PR DAY INHALED
     Route: 055
     Dates: start: 20090515, end: 20090602

REACTIONS (5)
  - CONVULSION [None]
  - DEHYDRATION [None]
  - FALL [None]
  - HYPOAESTHESIA [None]
  - SENSATION OF HEAVINESS [None]
